FAERS Safety Report 7430010-1 (Version None)
Quarter: 2011Q2

REPORT INFORMATION
  Report Type: 
  Country: None (occurrence: None)
  Receive Date: 20110421
  Receipt Date: 20110414
  Transmission Date: 20111010
  Serious: Yes (Other)
  Sender: FDA-Public Use
  Company Number: US-US-EMD SERONO, INC.-7054011

PATIENT
  Sex: Male

DRUGS (9)
  1. PANTOPRAZOLE [Concomitant]
     Dates: end: 20110101
  2. ONE A DAY VITAMIN FOR MEN [Concomitant]
     Dates: end: 20110411
  3. REBIF [Suspect]
     Indication: PRODUCT USED FOR UNKNOWN INDICATION
     Route: 058
     Dates: start: 20090116, end: 20110411
  4. TRAMADOL HCL [Concomitant]
     Dates: end: 20110101
  5. CIPROFLOXACIN [Concomitant]
     Dates: end: 20110101
  6. KETOROLAC TROMETHAMINE [Concomitant]
     Dates: end: 20110101
  7. VITAMIN D [Concomitant]
     Dates: end: 20110411
  8. NAPROXEN (ALEVE) [Concomitant]
     Indication: PREMEDICATION
     Dates: end: 20110411
  9. HYDROCODONE BITARTRATE [Concomitant]
     Dates: end: 20110101

REACTIONS (2)
  - PLATELET COUNT DECREASED [None]
  - BENIGN NEOPLASM OF THYROID GLAND [None]
